FAERS Safety Report 4423024-7 (Version None)
Quarter: 2004Q3

REPORT INFORMATION
  Report Type: 
  Country: None (occurrence: None)
  Receive Date: 20040811
  Receipt Date: 20040729
  Transmission Date: 20050211
  Serious: Yes (Hospitalization)
  Sender: FDA-Public Use
  Company Number: ES-JNJFOC-20040707958

PATIENT
  Age: 22 Year
  Sex: Female
  Weight: 50 kg

DRUGS (5)
  1. TOPAMAX [Suspect]
     Route: 049
     Dates: end: 20040727
  2. TOPAMAX [Suspect]
     Dosage: ONE AND A HALF TABLET 25MG
     Route: 049
     Dates: end: 20040727
  3. TOPAMAX [Suspect]
     Route: 049
     Dates: end: 20040727
  4. TOPAMAX [Suspect]
     Indication: PERSONALITY DISORDER
     Dosage: 1/2 TABLET OF 25MG
     Route: 049
     Dates: end: 20040727
  5. ALPRAZOLAM [Concomitant]
     Route: 065

REACTIONS (2)
  - EXTRAPYRAMIDAL DISORDER [None]
  - MUSCLE RIGIDITY [None]
